FAERS Safety Report 13567013 (Version 1)
Quarter: 2017Q2

REPORT INFORMATION
  Report Type: Spontaneous
  Country: US (occurrence: US)
  Receive Date: 20170519
  Receipt Date: 20170519
  Transmission Date: 20170830
  Serious: Yes (Other)
  Sender: FDA-Public Use
  Company Number: None

PATIENT
  Age: 57 Year
  Sex: Male
  Weight: 119.2 kg

DRUGS (2)
  1. ROSUVASTATIN. [Concomitant]
     Active Substance: ROSUVASTATIN
  2. BENZONATATE. [Suspect]
     Active Substance: BENZONATATE
     Indication: UPPER RESPIRATORY TRACT INFECTION
     Dosage: ?          QUANTITY:15 CAPSULE(S);?
     Route: 048
     Dates: start: 20170408, end: 20170409

REACTIONS (3)
  - Amnesia [None]
  - Cough [None]
  - Syncope [None]

NARRATIVE: CASE EVENT DATE: 20170409
